FAERS Safety Report 9304850 (Version 2)
Quarter: 2013Q2

REPORT INFORMATION
  Report Type: Spontaneous
  Country: DE (occurrence: DE)
  Receive Date: 20130523
  Receipt Date: 20130624
  Transmission Date: 20140414
  Serious: Yes (Other)
  Sender: FDA-Public Use
  Company Number: DE-ROCHE-1228023

PATIENT
  Age: 70 Year
  Sex: Female

DRUGS (8)
  1. MABTHERA [Suspect]
     Indication: B-CELL LYMPHOMA
     Dosage: MOST RECENT DOSE WAS ON 23/APR/2013
     Route: 042
     Dates: start: 20130129
  2. BENDAMUSTINE [Suspect]
     Indication: B-CELL LYMPHOMA
     Route: 042
     Dates: start: 20130129, end: 20130129
  3. BENDAMUSTINE [Suspect]
     Route: 042
  4. DEXAMETHASONE [Concomitant]
     Route: 065
     Dates: start: 20130129
  5. FENISTIL [Concomitant]
     Route: 065
  6. RANITIC [Concomitant]
     Route: 065
  7. PREDNISOLON [Concomitant]
     Route: 065
     Dates: start: 20130514
  8. SODIUM CHLORIDE [Concomitant]

REACTIONS (2)
  - Erythema [Not Recovered/Not Resolved]
  - Pruritus [Not Recovered/Not Resolved]
